FAERS Safety Report 24035407 (Version 4)
Quarter: 2024Q3

REPORT INFORMATION
  Report Type: Report from Study
  Country: US (occurrence: US)
  Receive Date: 20240701
  Receipt Date: 20240710
  Transmission Date: 20241016
  Serious: No
  Sender: ROCHE
  Company Number: US-ROCHE-3578832

PATIENT
  Age: 13 Year
  Sex: Female

DRUGS (1)
  1. EVRYSDI [Suspect]
     Active Substance: RISDIPLAM
     Indication: Spinal muscular atrophy
     Dosage: STRENGTH 0.75 MG/ML
     Route: 048
     Dates: start: 20221021, end: 20231012

REACTIONS (1)
  - Rash [Not Recovered/Not Resolved]
